FAERS Safety Report 4812849-1 (Version None)
Quarter: 2005Q4

REPORT INFORMATION
  Report Type: 
  Country: None (occurrence: None)
  Receive Date: 20051028
  Receipt Date: 20041129
  Transmission Date: 20060501
  Serious: No
  Sender: FDA-Public Use
  Company Number: US-GLAXOSMITHKLINE-A0535363A

PATIENT
  Age: 47 Year
  Sex: Male

DRUGS (5)
  1. ADVAIR DISKUS 100/50 [Suspect]
     Indication: ASTHMA
     Dosage: 1PUFF TWICE PER DAY
     Route: 055
     Dates: start: 20030722
  2. ELAVIL [Concomitant]
     Indication: DEPRESSION
     Dosage: 300MG AT NIGHT
  3. XANAX [Concomitant]
     Indication: ANXIETY
     Dosage: .5MG FOUR TIMES PER DAY
  4. SEREVENT [Concomitant]
     Dosage: 1PUFF TWICE PER DAY
     Route: 055
     Dates: start: 20040803
  5. FLOVENT [Concomitant]
     Dosage: 2PUFF TWICE PER DAY
     Route: 055
     Dates: start: 20040803

REACTIONS (2)
  - ORAL FUNGAL INFECTION [None]
  - SINUSITIS [None]
